FAERS Safety Report 11539808 (Version 1)
Quarter: 2015Q3

REPORT INFORMATION
  Report Type: Spontaneous
  Country: FR (occurrence: FR)
  Receive Date: 20150923
  Receipt Date: 20150923
  Transmission Date: 20151125
  Serious: Yes (Life-Threatening, Hospitalization)
  Sender: FDA-Public Use
  Company Number: FR-SA-2015SA133510

PATIENT
  Age: 70 Year
  Sex: Male

DRUGS (19)
  1. SPIRONOLACTONE. [Suspect]
     Active Substance: SPIRONOLACTONE
     Route: 048
     Dates: start: 20150728, end: 20150808
  2. CARDENSIEL [Suspect]
     Active Substance: BISOPROLOL FUMARATE
     Route: 048
     Dates: start: 20150728, end: 20150810
  3. AUGMENTIN [Suspect]
     Active Substance: AMOXICILLIN\CLAVULANATE POTASSIUM
     Route: 048
     Dates: start: 20150727, end: 20150809
  4. SOLUDACTONE [Concomitant]
     Active Substance: CANRENOATE POTASSIUM
     Dates: start: 20150810
  5. DIGOXIN. [Concomitant]
     Active Substance: DIGOXIN
     Dates: start: 20150727, end: 20150729
  6. ALPRAZOLAM. [Suspect]
     Active Substance: ALPRAZOLAM
     Dosage: DOSE: 1 OR 2 TABLET/ DAY
     Route: 048
     Dates: start: 20150726, end: 20150806
  7. PRISTINAMYCIN [Concomitant]
     Active Substance: PRISTINAMYCIN
     Indication: SINUSITIS
     Dates: start: 20150707
  8. KARDEGIC [Suspect]
     Active Substance: ASPIRIN LYSINE
     Route: 048
     Dates: start: 20150726
  9. LASILIX [Suspect]
     Active Substance: FUROSEMIDE
     Route: 042
     Dates: start: 20150726, end: 20150728
  10. PREDNISOLONE. [Concomitant]
     Active Substance: PREDNISOLONE
     Indication: SINUSITIS
     Dates: start: 20150707
  11. CORDARONE [Suspect]
     Active Substance: AMIODARONE HYDROCHLORIDE
     Route: 048
     Dates: start: 20150730, end: 20150811
  12. BRILIQUE [Suspect]
     Active Substance: TICAGRELOR
     Route: 048
     Dates: start: 20150726, end: 20150811
  13. LASILIX [Suspect]
     Active Substance: FUROSEMIDE
     Route: 048
     Dates: end: 20150809
  14. FLUTICASONE [Concomitant]
     Active Substance: FLUTICASONE\FLUTICASONE PROPIONATE
     Indication: SINUSITIS
     Dates: start: 20150707
  15. TRIATEC [Suspect]
     Active Substance: RAMIPRIL
     Route: 048
     Dates: start: 20150726, end: 20150809
  16. PANTOPRAZOLE [Suspect]
     Active Substance: PANTOPRAZOLE SODIUM
     Route: 042
     Dates: start: 20150727, end: 20150811
  17. PREVISCAN [Suspect]
     Active Substance: FLUINDIONE
     Route: 048
     Dates: start: 20150730, end: 20150805
  18. SOLUDACTONE [Concomitant]
     Active Substance: CANRENOATE POTASSIUM
     Dates: start: 20150726, end: 20150727
  19. PROCORALAN [Concomitant]
     Active Substance: IVABRADINE
     Dates: start: 20150808, end: 20150809

REACTIONS (1)
  - Interstitial lung disease [Recovering/Resolving]

NARRATIVE: CASE EVENT DATE: 20150808
